FAERS Safety Report 4310831-4 (Version None)
Quarter: 2004Q1

REPORT INFORMATION
  Report Type: 
  Country: None (occurrence: None)
  Receive Date: 20040302
  Receipt Date: 20040217
  Transmission Date: 20041129
  Serious: Yes (Other)
  Sender: FDA-Public Use
  Company Number: NL-JNJFOC-20040105376

PATIENT
  Age: 72 Year
  Sex: Male

DRUGS (4)
  1. VASCOR [Suspect]
     Indication: ANGINA PECTORIS
     Dosage: 100 MG, 1 IN 1 DAY, ORAL
     Route: 048
     Dates: start: 20031128, end: 20040123
  2. CLOPIDOGREL BISULFATE [Suspect]
     Indication: ANGINA PECTORIS
     Dosage: 75 MG, 2 IN 1 DAY
     Dates: start: 20031201, end: 20040106
  3. ACETYLSALICYLIC ACID SRT [Concomitant]
  4. FENOFIBRATE [Concomitant]

REACTIONS (3)
  - AGEUSIA [None]
  - AGRANULOCYTOSIS [None]
  - DRUG INTERACTION [None]
